FAERS Safety Report 13194633 (Version 2)
Quarter: 2018Q2

REPORT INFORMATION
  Report Type: Spontaneous
  Country: US (occurrence: US)
  Receive Date: 20170207
  Receipt Date: 20180507
  Transmission Date: 20180711
  Serious: No
  Sender: FDA-Public Use
  Company Number: US-JAZZ-2016-US-011075

PATIENT
  Sex: Female

DRUGS (1)
  1. PRIALT [Suspect]
     Active Substance: ZICONOTIDE ACETATE
     Indication: SPINAL PAIN
     Dosage: UNK ?G, QH
     Route: 037

REACTIONS (6)
  - Pain [Unknown]
  - Sinusitis [Unknown]
  - Device issue [Unknown]
  - Hypersensitivity [Unknown]
  - Drug ineffective [Unknown]
  - Paronychia [Unknown]

NARRATIVE: CASE EVENT DATE: 2016
